FAERS Safety Report 8667864 (Version 3)
Quarter: 2012Q4

REPORT INFORMATION
  Report Type: Report from Study
  Country: US (occurrence: US)
  Receive Date: 20120717
  Receipt Date: 20121116
  Transmission Date: 20130627
  Serious: Yes (Other)
  Sender: FDA-Public Use
  Company Number: US-JNJFOC-20120706240

PATIENT
  Sex: Male

DRUGS (3)
  1. STELARA [Suspect]
     Indication: PSORIASIS
     Route: 058
     Dates: start: 20120615
  2. CORTICOSTEROID [Concomitant]
     Indication: PSORIASIS
     Route: 061
  3. CYCLOSPORINE [Concomitant]
     Indication: PSORIASIS

REACTIONS (12)
  - Asthma [Recovering/Resolving]
  - Psoriasis [Recovering/Resolving]
  - Blood pressure increased [Recovered/Resolved]
  - Weight fluctuation [Unknown]
  - Injection site pain [Recovered/Resolved]
  - Headache [Recovering/Resolving]
  - Fatigue [Recovered/Resolved]
  - Oropharyngeal pain [Recovering/Resolving]
  - Blood triglycerides increased [Unknown]
  - Blood cholesterol increased [Unknown]
  - Dizziness [Recovered/Resolved]
  - Feeling abnormal [Recovered/Resolved]
